FAERS Safety Report 9858159 (Version 1)
Quarter: 2014Q1

REPORT INFORMATION
  Report Type: Spontaneous
  Country: US (occurrence: US)
  Receive Date: 20140131
  Receipt Date: 20140131
  Transmission Date: 20141002
  Serious: No
  Sender: FDA-Public Use
  Company Number: US-TEVA-458886USA

PATIENT
  Sex: Male
  Weight: 81.72 kg

DRUGS (5)
  1. PROAIR HFA [Suspect]
     Indication: ASTHMA
  2. PREDNISONE [Concomitant]
  3. AMOXICILLIN [Concomitant]
  4. OXYCODONE [Concomitant]
  5. ALBUTEROL [Concomitant]

REACTIONS (2)
  - Blood pressure increased [Recovered/Resolved]
  - Dizziness [Recovered/Resolved]
